FAERS Safety Report 7207265-1 (Version None)
Quarter: 2011Q1

REPORT INFORMATION
  Report Type: 
  Country: None (occurrence: None)
  Receive Date: 20110103
  Receipt Date: 20101230
  Transmission Date: 20110831
  Serious: Yes (Hospitalization, Other)
  Sender: FDA-Public Use
  Company Number: IN-BRISTOL-MYERS SQUIBB COMPANY-15463706

PATIENT
  Age: 50 Year
  Sex: Female

DRUGS (3)
  1. BUPIVACAINE HCL [Suspect]
     Indication: EPIDURAL ANAESTHESIA
     Dosage: 1DF = 5MG IN .5%  CAUDAL INJECTION NO OF DOSE :1
     Route: 037
  2. SODIUM CHLORIDE [Concomitant]
     Dosage: 1DF = 4ML IN .9%
  3. BUTORPHANOL TARTRATE [Suspect]
     Indication: EPIDURAL ANAESTHESIA
     Dosage: STRENGTH:1ML CAUDAL INJECTION NO OF DOSE :1
     Route: 037

REACTIONS (2)
  - PARAPLEGIA [None]
  - DRUG ADMINISTRATION ERROR [None]
